FAERS Safety Report 24193765 (Version 2)
Quarter: 2025Q2

REPORT INFORMATION
  Report Type: Spontaneous
  Country: US (occurrence: US)
  Receive Date: 20240809
  Receipt Date: 20250428
  Transmission Date: 20250716
  Serious: Yes (Other)
  Sender: LABORATOIRES SERB
  Company Number: US-SERB S.A.S.-2160222

PATIENT
  Sex: Male

DRUGS (2)
  1. VORAXAZE [Suspect]
     Active Substance: GLUCARPIDASE
     Indication: Toxicity to various agents
  2. METHOTREXATE [Suspect]
     Active Substance: METHOTREXATE

REACTIONS (3)
  - Hypervolaemia [Unknown]
  - Prescribed underdose [Unknown]
  - Haemodialysis [Unknown]
